FAERS Safety Report 6714104 (Version 9)
Quarter: 2014Q1

REPORT INFORMATION
  Report Type: Report from Study
  Country: IN (occurrence: IN)
  Receive Date: 20080730
  Receipt Date: 20140310
  Transmission Date: 20141002
  Serious: Yes (Death, Hospitalization, Other)
  Sender: FDA-Public Use
  Company Number: IN-BRISTOL-MYERS SQUIBB COMPANY-14280580

PATIENT
  Age: 34 Year
  Sex: Male

DRUGS (4)
  1. SPRYCEL (CML) TABS [Suspect]
     Indication: CHRONIC MYELOID LEUKAEMIA
     Dosage: 5FEB-11APR,100MG.18APR-11MAY,100MG;12MAY-27MAY,80 MG/D;17JUN-25JUN08,60MG/D.
     Route: 048
     Dates: start: 20080205, end: 20080625
  2. LEVOFLOXACIN [Concomitant]
     Dates: start: 20080716
  3. AUGMENTIN [Concomitant]
     Dates: start: 20080716
  4. GRANULOCYTE COLONY-STIMULATING FACTOR NOS [Concomitant]

REACTIONS (6)
  - Malignant neoplasm progression [Fatal]
  - Febrile neutropenia [Not Recovered/Not Resolved]
  - Pyrexia [Not Recovered/Not Resolved]
  - Status epilepticus [Not Recovered/Not Resolved]
  - Respiratory distress [Not Recovered/Not Resolved]
  - Grand mal convulsion [Recovered/Resolved]
